FAERS Safety Report 4827101-8 (Version None)
Quarter: 2005Q4

REPORT INFORMATION
  Report Type: 
  Country: None (occurrence: None)
  Receive Date: 20051114
  Receipt Date: 20051007
  Transmission Date: 20060501
  Serious: Yes (Hospitalization)
  Sender: FDA-Public Use
  Company Number: JP-JPN-A20052410

PATIENT
  Age: 36 Year
  Sex: Female

DRUGS (6)
  1. PAXIL [Suspect]
     Indication: NEURALGIA
     Route: 048
     Dates: start: 20051005, end: 20051006
  2. PRIMPERAN INJ [Concomitant]
     Indication: NAUSEA
     Dosage: 10MG TWICE PER DAY
     Route: 048
     Dates: start: 20051005, end: 20051007
  3. FLOMOX [Concomitant]
     Dosage: 100MG THREE TIMES PER DAY
     Route: 048
     Dates: start: 20051003, end: 20051006
  4. LOXONIN [Concomitant]
     Dosage: 60MG THREE TIMES PER DAY
     Route: 048
     Dates: start: 20051003, end: 20051004
  5. FLUMARIN [Concomitant]
     Dosage: 1G TWICE PER DAY
     Route: 042
     Dates: start: 20051005, end: 20051006
  6. AMINOFLUID [Concomitant]
     Route: 042
     Dates: start: 20051005, end: 20051006

REACTIONS (7)
  - CONDITION AGGRAVATED [None]
  - ELEVATED MOOD [None]
  - HYPERVENTILATION [None]
  - MALAISE [None]
  - NAUSEA [None]
  - PALPITATIONS [None]
  - VOMITING [None]
